FAERS Safety Report 13763825 (Version 4)
Quarter: 2017Q3

REPORT INFORMATION
  Report Type: Report from Study
  Country: US (occurrence: US)
  Receive Date: 20170718
  Receipt Date: 20170817
  Transmission Date: 20171127
  Serious: No
  Sender: FDA-Public Use
  Company Number: PHEH2017US022030

PATIENT
  Age: 41 Year
  Sex: Male

DRUGS (1)
  1. ILARIS [Suspect]
     Active Substance: CANAKINUMAB
     Indication: PRODUCT USED FOR UNKNOWN INDICATION
     Dosage: 1.2 ML, Q8H
     Route: 058
     Dates: start: 20161109

REACTIONS (5)
  - Pain [Unknown]
  - Arthralgia [Recovering/Resolving]
  - Withdrawal syndrome [Unknown]
  - Pain in extremity [Unknown]
  - Joint swelling [Recovering/Resolving]

NARRATIVE: CASE EVENT DATE: 20170719
